FAERS Safety Report 5916259-5 (Version None)
Quarter: 2008Q4

REPORT INFORMATION
  Report Type: 
  Country: None (occurrence: None)
  Receive Date: 20081013
  Receipt Date: 20081002
  Transmission Date: 20090506
  Serious: Yes (Other)
  Sender: FDA-Public Use
  Company Number: PHEH2008US04239

PATIENT
  Age: 62 Year
  Sex: Female
  Weight: 62.585 kg

DRUGS (8)
  1. RECLAST [Suspect]
     Indication: OSTEOPOROSIS
     Dosage: 5 MG, ONCE/SINGLE
     Route: 042
     Dates: start: 20080331, end: 20080331
  2. SIMVASTATIN [Concomitant]
  3. DIOVAN HCT [Concomitant]
     Dosage: 160/25 MG, QD
     Dates: start: 20070613
  4. GABAPENTIN [Concomitant]
  5. ESTRADIOL [Concomitant]
     Dosage: 1 MG, QD
  6. ASPIRIN [Concomitant]
  7. FISH OIL [Concomitant]
  8. CALCIUM WITH VITAMIN D [Concomitant]

REACTIONS (7)
  - ASTHMA [None]
  - BRONCHOSPASM [None]
  - CHRONIC OBSTRUCTIVE PULMONARY DISEASE [None]
  - COUGH [None]
  - DYSPNOEA [None]
  - OXYGEN SATURATION DECREASED [None]
  - WHEEZING [None]
